FAERS Safety Report 12461125 (Version 1)
Quarter: 2016Q2

REPORT INFORMATION
  Report Type: Spontaneous
  Country: US (occurrence: US)
  Receive Date: 20160613
  Receipt Date: 20160613
  Transmission Date: 20160815
  Serious: No
  Sender: FDA-Public Use
  Company Number: US-US WORLDMEDS, LLC-USW201511-000332

PATIENT
  Age: 63 Year
  Sex: Female
  Weight: 58.96 kg

DRUGS (8)
  1. CARBIDOPA/LEVODOPA [Concomitant]
     Active Substance: CARBIDOPA\LEVODOPA
     Dates: start: 2001
  2. TIZANIDINE. [Concomitant]
     Active Substance: TIZANIDINE
     Dates: start: 2014
  3. DIAZEPAM. [Concomitant]
     Active Substance: DIAZEPAM
     Dates: start: 2014
  4. AMANTADINE [Concomitant]
     Active Substance: AMANTADINE
     Dates: start: 2013
  5. NABUMETONE. [Concomitant]
     Active Substance: NABUMETONE
     Dates: start: 2013
  6. OXAZEPAM. [Concomitant]
     Active Substance: OXAZEPAM
     Dates: start: 2013
  7. APOKYN [Suspect]
     Active Substance: APOMORPHINE HYDROCHLORIDE
     Indication: PARKINSON^S DISEASE
     Route: 058
     Dates: start: 20151114, end: 20151114
  8. ESTRADIOL. [Concomitant]
     Active Substance: ESTRADIOL
     Dates: start: 2010

REACTIONS (3)
  - Balance disorder [Recovered/Resolved]
  - Dizziness [Recovered/Resolved]
  - Feeling abnormal [Recovered/Resolved]

NARRATIVE: CASE EVENT DATE: 20151114
